FAERS Safety Report 17837539 (Version 3)
Quarter: 2020Q3

REPORT INFORMATION
  Report Type: Spontaneous
  Country: FR (occurrence: FR)
  Receive Date: 20200528
  Receipt Date: 20200805
  Transmission Date: 20201103
  Serious: Yes (Hospitalization, Other)
  Sender: FDA-Public Use
  Company Number: FR-GILEAD-2020-0468348

PATIENT
  Age: 59 Year
  Sex: Male

DRUGS (6)
  1. PRAVASTATIN. [Concomitant]
     Active Substance: PRAVASTATIN
  2. CLOPIDOGREL [Concomitant]
     Active Substance: CLOPIDOGREL BISULFATE
  3. TRAMADOL. [Concomitant]
     Active Substance: TRAMADOL
  4. SERESTA [Concomitant]
     Active Substance: OXAZEPAM
  5. PREGABALIN. [Concomitant]
     Active Substance: PREGABALIN
  6. BIKTARVY [Suspect]
     Active Substance: BICTEGRAVIR SODIUM\EMTRICITABINE\TENOFOVIR ALAFENAMIDE FUMARATE
     Indication: PRODUCT USED FOR UNKNOWN INDICATION
     Dosage: 1 DOSAGE FORM
     Route: 065
     Dates: start: 201906, end: 2020

REACTIONS (12)
  - Venoocclusive disease [Unknown]
  - Small intestinal obstruction [Unknown]
  - Intentional product misuse [Recovered/Resolved]
  - Wrong technique in product usage process [Recovered/Resolved]
  - Radiation injury [Unknown]
  - Acute respiratory distress syndrome [Unknown]
  - Biliary ischaemia [Unknown]
  - Sepsis [Unknown]
  - Shock [Unknown]
  - Renal impairment [Unknown]
  - Pneumonia [Unknown]
  - Renal tubular necrosis [Unknown]

NARRATIVE: CASE EVENT DATE: 2020
